FAERS Safety Report 15446309 (Version 2)
Quarter: 2018Q4

REPORT INFORMATION
  Report Type: Spontaneous
  Country: US (occurrence: US)
  Receive Date: 20180928
  Receipt Date: 20181012
  Transmission Date: 20190204
  Serious: Yes (Other)
  Sender: FDA-Public Use
  Company Number: US-AMGEN-USASP2018078879

PATIENT
  Age: 77 Year
  Sex: Female

DRUGS (1)
  1. PROLIA [Suspect]
     Active Substance: DENOSUMAB
     Indication: OSTEOPOROSIS POSTMENOPAUSAL
     Dosage: UNK
     Route: 065
     Dates: start: 20180417

REACTIONS (9)
  - Hyperthyroidism [Unknown]
  - Dyspnoea [Recovered/Resolved]
  - Muscular weakness [Unknown]
  - Blood calcium increased [Unknown]
  - Influenza [Unknown]
  - Myalgia [Recovering/Resolving]
  - Bronchitis [Unknown]
  - Urticaria [Recovering/Resolving]
  - Musculoskeletal pain [Not Recovered/Not Resolved]

NARRATIVE: CASE EVENT DATE: 2018
